FAERS Safety Report 8048174-8 (Version None)
Quarter: 2012Q1

REPORT INFORMATION
  Report Type: 
  Country: None (occurrence: None)
  Receive Date: 20120113
  Receipt Date: 20120113
  Transmission Date: 20120608
  Serious: Yes (Other)
  Sender: FDA-Public Use
  Company Number: None

PATIENT
  Age: 65 Year
  Sex: Male

DRUGS (8)
  1. EXJADE [Concomitant]
  2. LISINOPRIL [Concomitant]
  3. METFORMIN HCL [Concomitant]
  4. FINASTERIDE [Concomitant]
  5. HYDROCHLOROTHIAZIDE [Concomitant]
  6. REVLIMID [Suspect]
     Indication: MULTIPLE MYELOMA
     Dosage: 5MG QDX21D/28D ORALLY
     Route: 048
  7. REVLIMID [Concomitant]
  8. SIMVASTATIN [Concomitant]

REACTIONS (2)
  - PRURITUS [None]
  - RASH [None]
